FAERS Safety Report 12374845 (Version 4)
Quarter: 2018Q4

REPORT INFORMATION
  Report Type: Spontaneous
  Country: DK (occurrence: DK)
  Receive Date: 20160517
  Receipt Date: 20181224
  Transmission Date: 20190204
  Serious: Yes (Other)
  Sender: FDA-Public Use
  Company Number: DK-AUROBINDO-AUR-APL-2016-05870

PATIENT
  Age: 25 Year
  Sex: Male

DRUGS (9)
  1. FENTANYL. [Suspect]
     Active Substance: FENTANYL
     Indication: BACK PAIN
  2. MORPHINE [Suspect]
     Active Substance: MORPHINE
     Indication: NECK PAIN
     Dosage: 400 MILLIGRAM, ONCE A DAY ((20-40 MG, WITH AN ADDITIONAL DOSE OF 10 MG X 4, AS NECESSARY)
     Route: 065
  3. CHLORZOXAZONE. [Suspect]
     Active Substance: CHLORZOXAZONE
     Indication: NECK PAIN
     Dosage: 750 MILLIGRAM, ONCE A DAY (250 MG, TID)
     Route: 065
  4. CHLORZOXAZONE. [Suspect]
     Active Substance: CHLORZOXAZONE
     Indication: BACK PAIN
     Dosage: 250 MG, TID
     Route: 065
  5. MORPHINE [Suspect]
     Active Substance: MORPHINE
     Indication: BACK PAIN
     Dosage: (20-40MG WITH A FURTHER OPTION OF 10MG FOUR TIMES AS NEEDED)
     Route: 065
  6. MORPHINE [Suspect]
     Active Substance: MORPHINE
     Dosage: (20-40 MG, WITH AN ADDITIONAL DOSE OF 10 MG X 4, AS NECESSARY)
     Route: 065
  7. TRAMADOL. [Suspect]
     Active Substance: TRAMADOL
     Indication: NECK PAIN
     Dosage: 150-400 MG DAILY
     Route: 065
  8. TRAMADOL. [Suspect]
     Active Substance: TRAMADOL
     Indication: BACK PAIN
  9. FENTANYL. [Suspect]
     Active Substance: FENTANYL
     Indication: NECK PAIN
     Dosage: 25 MCG, EVERY HOUR
     Route: 065

REACTIONS (8)
  - Gait disturbance [Recovering/Resolving]
  - Muscle spasms [Recovering/Resolving]
  - Dizziness [Recovering/Resolving]
  - Spinal column injury [Recovering/Resolving]
  - Weight decreased [Recovering/Resolving]
  - Nausea [Recovering/Resolving]
  - Sensory disturbance [Recovering/Resolving]
  - Secondary adrenocortical insufficiency [Recovering/Resolving]
